APPROVED DRUG PRODUCT: FLUOCINONIDE
Active Ingredient: FLUOCINONIDE
Strength: 0.05%
Dosage Form/Route: OINTMENT;TOPICAL
Application: A212976 | Product #001 | TE Code: AB
Applicant: XIROMED PHARMA ESPANA SL
Approved: Nov 26, 2019 | RLD: No | RS: No | Type: RX